FAERS Safety Report 19321293 (Version 1)
Quarter: 2021Q2

REPORT INFORMATION
  Report Type: Spontaneous
  Country: US (occurrence: US)
  Receive Date: 20210527
  Receipt Date: 20210527
  Transmission Date: 20210717
  Serious: No
  Sender: FDA-Public Use
  Company Number: US-ELI_LILLY_AND_COMPANY-US202105012541

PATIENT
  Age: 30 Year

DRUGS (2)
  1. REYVOW [Suspect]
     Active Substance: LASMIDITAN
     Indication: MIGRAINE
     Dosage: 100 MG, UNKNOWN
     Route: 065
     Dates: start: 20210414, end: 20210414
  2. MAXALT [Concomitant]
     Active Substance: RIZATRIPTAN BENZOATE
     Indication: MIGRAINE

REACTIONS (2)
  - Insomnia [Recovered/Resolved]
  - Anxiety [Recovered/Resolved]

NARRATIVE: CASE EVENT DATE: 20210414
